FAERS Safety Report 7502638-1 (Version None)
Quarter: 2011Q2

REPORT INFORMATION
  Report Type: 
  Country: None (occurrence: None)
  Receive Date: 20110525
  Receipt Date: 20110512
  Transmission Date: 20111010
  Serious: Yes (Other)
  Sender: FDA-Public Use
  Company Number: PHHY2011US41200

PATIENT

DRUGS (3)
  1. SEROQUEL [Concomitant]
  2. CLOZARIL [Suspect]
  3. ANTIDEPRESSANTS [Interacting]

REACTIONS (7)
  - HALLUCINATION, VISUAL [None]
  - AMNESIA [None]
  - LOSS OF CONSCIOUSNESS [None]
  - SCHIZOPHRENIA [None]
  - DELUSION [None]
  - SYNCOPE [None]
  - ANXIETY [None]
